FAERS Safety Report 6425126-2 (Version None)
Quarter: 2009Q4

REPORT INFORMATION
  Report Type: 
  Country: None (occurrence: None)
  Receive Date: 20091102
  Receipt Date: 20091102
  Transmission Date: 20100525
  Serious: Yes (Hospitalization, Other)
  Sender: FDA-Public Use
  Company Number: None

PATIENT
  Sex: Female
  Weight: 53.0709 kg

DRUGS (1)
  1. TRI LO SPRINTEC [Suspect]
     Indication: CONTRACEPTION
     Dosage: ONE PILL DAILY PO
     Route: 048
     Dates: start: 20081101, end: 20091031

REACTIONS (4)
  - ABDOMINAL PAIN [None]
  - IMPAIRED WORK ABILITY [None]
  - INSOMNIA [None]
  - MENTAL DISORDER [None]
